FAERS Safety Report 25006135 (Version 1)
Quarter: 2025Q1

REPORT INFORMATION
  Report Type: Spontaneous
  Country: GB (occurrence: GB)
  Receive Date: 20250224
  Receipt Date: 20250224
  Transmission Date: 20250409
  Serious: Yes (Hospitalization, Other)
  Sender: GE HEALTHCARE
  Company Number: None

PATIENT
  Age: 46 Year
  Sex: Female
  Weight: 160 kg

DRUGS (1)
  1. CLARISCAN [Suspect]
     Active Substance: GADOTERATE MEGLUMINE
     Indication: Magnetic resonance imaging
     Route: 042
     Dates: start: 20250218, end: 20250218

REACTIONS (4)
  - Myalgia [Unknown]
  - Dyspnoea [Unknown]
  - Tachycardia [Unknown]
  - Tremor [Unknown]

NARRATIVE: CASE EVENT DATE: 20250218
